FAERS Safety Report 4682828-6 (Version None)
Quarter: 2005Q2

REPORT INFORMATION
  Report Type: 
  Country: None (occurrence: None)
  Receive Date: 20050606
  Receipt Date: 20050525
  Transmission Date: 20051028
  Serious: Yes (Hospitalization)
  Sender: FDA-Public Use
  Company Number: 2005UW08151

PATIENT
  Age: 57 Year
  Sex: Female

DRUGS (12)
  1. CRESTOR [Suspect]
     Route: 048
     Dates: start: 20040101, end: 20050301
  2. ADALAT CC [Concomitant]
     Route: 048
  3. AMITRIPTYLINE [Concomitant]
     Route: 048
  4. DOXAZOSIN [Concomitant]
     Route: 048
  5. DYAZIDE [Concomitant]
     Dosage: 37.5/25 MG 1-2/ DY
     Route: 048
  6. FOSAMAX [Concomitant]
     Route: 048
  7. IMDUR [Concomitant]
     Route: 048
  8. MOBIC [Concomitant]
     Route: 048
  9. NASONEX [Concomitant]
     Route: 045
  10. PLAVIX [Concomitant]
     Route: 048
  11. PREMARIN [Concomitant]
     Route: 048
  12. PEPCID [Concomitant]

REACTIONS (7)
  - ANTINUCLEAR ANTIBODY POSITIVE [None]
  - BRONCHITIS ACUTE [None]
  - INFLUENZA [None]
  - RED BLOOD CELL SEDIMENTATION RATE INCREASED [None]
  - RESPIRATORY DISTRESS [None]
  - RHABDOMYOLYSIS [None]
  - VIRAL MYOSITIS [None]
